FAERS Safety Report 11491768 (Version 1)
Quarter: 2015Q3

REPORT INFORMATION
  Report Type: Spontaneous
  Country: US (occurrence: None)
  Receive Date: 20150909
  Receipt Date: 20150909
  Transmission Date: 20151125
  Serious: No
  Sender: FDA-Public Use
  Company Number: None

PATIENT
  Age: 56 Year
  Sex: Female
  Weight: 142.88 kg

DRUGS (8)
  1. PROZAC [Concomitant]
     Active Substance: FLUOXETINE HYDROCHLORIDE
  2. CALCIUM [Concomitant]
     Active Substance: CALCIUM
  3. COREG [Concomitant]
     Active Substance: CARVEDILOL
  4. GLIPIZIDE. [Concomitant]
     Active Substance: GLIPIZIDE
  5. VITAMIN D [Concomitant]
     Active Substance: CHOLECALCIFEROL
  6. LEVEMIR [Suspect]
     Active Substance: INSULIN DETEMIR
     Indication: TYPE 2 DIABETES MELLITUS
     Route: 058
  7. LOSARTAN. [Concomitant]
     Active Substance: LOSARTAN
  8. SPIRONO/HCTZ [Concomitant]

REACTIONS (3)
  - Injection site pain [None]
  - Injection site pruritus [None]
  - Injection site swelling [None]

NARRATIVE: CASE EVENT DATE: 20150820
